FAERS Safety Report 8123494-7 (Version None)
Quarter: 2012Q1

REPORT INFORMATION
  Report Type: 
  Country: None (occurrence: None)
  Receive Date: 20120208
  Receipt Date: 20120131
  Transmission Date: 20120608
  Serious: Yes (Other)
  Sender: FDA-Public Use
  Company Number: PHEH2012US002676

PATIENT
  Sex: Female

DRUGS (6)
  1. NEURONTIN [Concomitant]
     Dosage: UNK UKN, UNK
  2. EFFEXOR [Concomitant]
     Dosage: UNK UKN, UNK
  3. SYNTHROID [Concomitant]
     Dosage: UNK UKN, UNK
  4. GILENYA [Suspect]
     Indication: MULTIPLE SCLEROSIS
     Dosage: 0.5 MG, QD
     Route: 048
     Dates: start: 20110708
  5. BACLOFEN [Concomitant]
     Dosage: UNK UKN, UNK
  6. NAPROXEN [Concomitant]
     Dosage: UNK UKN, UNK

REACTIONS (4)
  - CENTRAL NERVOUS SYSTEM LESION [None]
  - CERVICAL SPINAL STENOSIS [None]
  - INTERVERTEBRAL DISC PROTRUSION [None]
  - SPINAL OSTEOARTHRITIS [None]
